FAERS Safety Report 18466613 (Version 1)
Quarter: 2020Q4

REPORT INFORMATION
  Report Type: Spontaneous
  Country: GB (occurrence: GB)
  Receive Date: 20201104
  Receipt Date: 20201104
  Transmission Date: 20210114
  Serious: Yes (Hospitalization, Disabling, Other)
  Sender: FDA-Public Use
  Company Number: GB-AUROBINDO-AUR-APL-2020-054093

PATIENT
  Age: 10 Year
  Sex: Female
  Weight: 29.2 kg

DRUGS (3)
  1. RISPERIDONE. [Suspect]
     Active Substance: RISPERIDONE
     Indication: AGGRESSION
     Dosage: 0.25 MILLIGRAM
     Route: 048
  2. MEDIKINET XL [Concomitant]
     Active Substance: METHYLPHENIDATE HYDROCHLORIDE
     Indication: PRODUCT USED FOR UNKNOWN INDICATION
     Dosage: 20 MILLIGRAM, ONCE A DAY (15 MANE, 5 MG MIDDAY)
     Route: 065
  3. MELATONIN [Concomitant]
     Active Substance: MELATONIN
     Indication: PRODUCT USED FOR UNKNOWN INDICATION
     Dosage: 6 MILLIGRAM (NOCTE)
     Route: 065

REACTIONS (4)
  - Protrusion tongue [Unknown]
  - Extrapyramidal disorder [Recovered/Resolved]
  - Hypokinesia [Unknown]
  - Aphasia [Unknown]

NARRATIVE: CASE EVENT DATE: 20200924
